FAERS Safety Report 25976801 (Version 1)
Quarter: 2025Q4

REPORT INFORMATION
  Report Type: Report from Study
  Country: CO (occurrence: CO)
  Receive Date: 20251029
  Receipt Date: 20251029
  Transmission Date: 20260117
  Serious: Yes (Other)
  Sender: ABBVIE
  Company Number: CO-ABBVIE-6516532

PATIENT
  Age: 59 Year
  Sex: Female
  Weight: 54 kg

DRUGS (2)
  1. BOTOX [Suspect]
     Active Substance: ONABOTULINUMTOXINA
     Indication: Migraine
     Dosage: TIME INTERVAL: AS NECESSARY: STRENGTH: 200 UNIT VIAL, DOSE: 195 UNITS, FREQUENCY: EVERY THREE MONTHS
     Route: 030
     Dates: start: 20220428, end: 20220428
  2. BOTOX [Suspect]
     Active Substance: ONABOTULINUMTOXINA
     Indication: Migraine
     Dosage: TIME INTERVAL: AS NECESSARY: STRENGTH: 200 UNIT VIAL, DOSE: 195 UNITS, FREQUENCY: EVERY THREE MONTHS
     Route: 030
     Dates: start: 20240827, end: 20240827

REACTIONS (4)
  - Blindness transient [Unknown]
  - Migraine [Not Recovered/Not Resolved]
  - Insomnia [Unknown]
  - Bone pain [Unknown]

NARRATIVE: CASE EVENT DATE: 20240901
